FAERS Safety Report 4500107-4 (Version None)
Quarter: 2004Q4

REPORT INFORMATION
  Report Type: 
  Country: None (occurrence: None)
  Receive Date: 20041110
  Receipt Date: 20041029
  Transmission Date: 20050328
  Serious: Yes (Other)
  Sender: FDA-Public Use
  Company Number: 2004085273

PATIENT
  Sex: Male
  Weight: 79.3795 kg

DRUGS (1)
  1. LISTERINE ANTISEPTIC MOUTHWASH (EUCALYPTOL, MENTHOL, METHYL SALICYLATE [Suspect]
     Indication: DENTAL CARE
     Dosage: MOUTHFUL TWICE DAILY, ORAL TOPICAL
     Route: 048
     Dates: start: 19990101

REACTIONS (2)
  - CARCINOMA [None]
  - ORAL DISCOMFORT [None]
